FAERS Safety Report 6010340-0 (Version None)
Quarter: 2008Q4

REPORT INFORMATION
  Report Type: 
  Country: None (occurrence: None)
  Receive Date: 20081218
  Receipt Date: 20080815
  Transmission Date: 20090506
  Serious: No
  Sender: FDA-Public Use
  Company Number: A0744174A

PATIENT
  Age: 77 Year
  Sex: Female

DRUGS (14)
  1. FLONASE [Suspect]
     Indication: DRUG USE FOR UNKNOWN INDICATION
     Dosage: 2SPR UNKNOWN
     Route: 045
  2. BONIVA [Concomitant]
     Indication: OSTEOPOROSIS
     Dosage: 150MG MONTHLY
     Route: 048
     Dates: start: 20080118, end: 20080506
  3. CORTICOSTEROID [Concomitant]
     Dates: start: 20080401
  4. FLECAINIDE ACETATE [Concomitant]
  5. COUMADIN [Concomitant]
  6. ATENOLOL [Concomitant]
  7. HYDROCHLOROTHIAZIDE [Concomitant]
  8. FLAX SEED OIL [Concomitant]
  9. LISINOPRIL [Concomitant]
  10. AVAPRO [Concomitant]
  11. MULTI-VITAMIN [Concomitant]
  12. SIMVASTATIN [Concomitant]
  13. CALCIUM + VITAMIN D [Concomitant]
  14. SPIRONOLACTONE [Concomitant]

REACTIONS (1)
  - GASTROINTESTINAL DISORDER [None]
